FAERS Safety Report 8889745 (Version 1)
Quarter: 2012Q4

REPORT INFORMATION
  Report Type: 
  Country: GB (occurrence: GB)
  Receive Date: 20121107
  Receipt Date: 20121107
  Transmission Date: 20130627
  Serious: Yes (Other)
  Sender: FDA-Public Use
  Company Number: GB-JNJFOC-20121100222

PATIENT
  Age: 44 Year

DRUGS (5)
  1. DARUNAVIR [Suspect]
     Indication: HIV INFECTION
     Route: 065
  2. RITONAVIR [Interacting]
     Indication: HIV INFECTION
     Route: 065
  3. TACROLIMUS [Interacting]
     Indication: LIVER TRANSPLANT
     Route: 065
  4. TACROLIMUS [Interacting]
     Indication: LIVER TRANSPLANT
     Route: 065
  5. TACROLIMUS [Interacting]
     Indication: LIVER TRANSPLANT
     Route: 065

REACTIONS (4)
  - Immunosuppressant drug level decreased [Recovered/Resolved]
  - Transplant rejection [Unknown]
  - Toxicity to various agents [Unknown]
  - Drug interaction [Unknown]
